FAERS Safety Report 9558210 (Version 1)
Quarter: 2013Q3

REPORT INFORMATION
  Report Type: Spontaneous
  Country: US (occurrence: None)
  Receive Date: 20130724
  Receipt Date: 20130724
  Transmission Date: 20140515
  Serious: Yes (Other)
  Sender: FDA-Public Use
  Company Number: PHEH2013US007412

PATIENT
  Sex: Female
  Weight: 57.6 kg

DRUGS (4)
  1. GILENYA (FINGOLIMOD) [Suspect]
     Route: 048
  2. NEURONTIN (GABAPENTIN) [Concomitant]
  3. MULTI-VIT (VITAMIN NOS) [Concomitant]
  4. VITAMIN D (ERGOCALCIFEROL) [Concomitant]

REACTIONS (1)
  - Erythema [None]
